FAERS Safety Report 19660127 (Version 2)
Quarter: 2022Q3

REPORT INFORMATION
  Report Type: Spontaneous
  Country: CA (occurrence: CA)
  Receive Date: 20210805
  Receipt Date: 20220713
  Transmission Date: 20221026
  Serious: Yes (Other)
  Sender: FDA-Public Use
  Company Number: CA-NOVARTISPH-NVSC2020CA239795

PATIENT
  Sex: Female
  Weight: 70 kg

DRUGS (5)
  1. RIBOCICLIB [Suspect]
     Active Substance: RIBOCICLIB
     Indication: Product used for unknown indication
     Dosage: UNK
     Route: 065
     Dates: start: 202002, end: 202007
  2. LETROZOLE [Suspect]
     Active Substance: LETROZOLE
     Indication: Product used for unknown indication
     Dosage: UNK
     Route: 065
     Dates: start: 202002, end: 202007
  3. IBRANCE [Suspect]
     Active Substance: PALBOCICLIB
     Indication: Breast cancer metastatic
     Dosage: 125 MG, QD,  (ONCE DAILY FOR 21 DAYS FOLLOWED BY 7 DAYS OFF TREATMENT)
     Route: 065
     Dates: start: 20200819
  4. IBRANCE [Suspect]
     Active Substance: PALBOCICLIB
     Dosage: 125 MG, CYCLIC, (DAILY ORAL FOR 21 DAYS OUT OF 28 DAYS)
     Route: 048
  5. ANASTROZOLE [Concomitant]
     Active Substance: ANASTROZOLE
     Indication: Breast cancer metastatic
     Dosage: 1 MG, QD
     Route: 065
     Dates: start: 20200819

REACTIONS (9)
  - Neoplasm progression [Not Recovered/Not Resolved]
  - Drug intolerance [Unknown]
  - Gastrooesophageal reflux disease [Unknown]
  - Hypersensitivity [Unknown]
  - Swollen tongue [Unknown]
  - Lip swelling [Recovered/Resolved]
  - Rash [Recovered/Resolved]
  - Pulmonary mass [Unknown]
  - Weight increased [Unknown]
